FAERS Safety Report 7648065-8 (Version None)
Quarter: 2011Q3

REPORT INFORMATION
  Report Type: 
  Country: None (occurrence: None)
  Receive Date: 20110801
  Receipt Date: 20110721
  Transmission Date: 20111222
  Serious: Yes (Disabling)
  Sender: FDA-Public Use
  Company Number: JP-ASTRAZENECA-2011SE10888

PATIENT
  Age: 51 Year
  Sex: Female

DRUGS (3)
  1. MARCAINE [Suspect]
     Indication: POSTOPERATIVE ANALGESIA
     Dosage: 2 ML/H, 50 MG
     Route: 008
     Dates: start: 20091101, end: 20091101
  2. XYLOCAINE [Suspect]
     Route: 065
     Dates: start: 20091101, end: 20091101
  3. XYLOCAINE [Suspect]
     Route: 065
     Dates: start: 20091101, end: 20091101

REACTIONS (1)
  - CAUDA EQUINA SYNDROME [None]
